FAERS Safety Report 12420752 (Version 1)
Quarter: 2016Q2

REPORT INFORMATION
  Report Type: Spontaneous
  Country: KR (occurrence: KR)
  Receive Date: 20160531
  Receipt Date: 20160531
  Transmission Date: 20160815
  Serious: Yes (Other)
  Sender: FDA-Public Use
  Company Number: KR-BAYER-2016-100784

PATIENT
  Age: 53 Year
  Sex: Male

DRUGS (7)
  1. CLOPIDOGREL [Suspect]
     Active Substance: CLOPIDOGREL BISULFATE
     Dosage: 300 MG, UNK
  2. HEPARIN [Suspect]
     Active Substance: HEPARIN SODIUM
     Dosage: 4000 U, UNK
     Route: 040
  3. HEPARIN [Suspect]
     Active Substance: HEPARIN SODIUM
     Dosage: 6 U/KG/HR
  4. ABCIXIMAB [Suspect]
     Active Substance: ABCIXIMAB
     Indication: VASCULAR STENT THROMBOSIS
     Dosage: 0.125 MCG/KG/MIN
     Route: 042
  5. ACETYLSALICYLIC ACID({=100 MG) [Suspect]
     Active Substance: ASPIRIN
     Dosage: 300 MG, UNK
  6. ABCIXIMAB [Suspect]
     Active Substance: ABCIXIMAB
     Indication: VASCULAR STENT THROMBOSIS
     Dosage: 0.25 MG/KG, UNK
     Route: 040
  7. HEPARIN [Suspect]
     Active Substance: HEPARIN SODIUM
     Dosage: 860 U/H INFUSION

REACTIONS (5)
  - Hypovolaemic shock [Recovered/Resolved]
  - Arterial haemorrhage [Recovered/Resolved]
  - Scrotal swelling [Recovered/Resolved]
  - Labelled drug-drug interaction medication error [None]
  - Drug administration error [None]
